FAERS Safety Report 4635130-2 (Version None)
Quarter: 2005Q2

REPORT INFORMATION
  Report Type: 
  Country: None (occurrence: None)
  Receive Date: 20050414
  Receipt Date: 20050314
  Transmission Date: 20051028
  Serious: Yes (Hospitalization)
  Sender: FDA-Public Use
  Company Number: IT-GLAXOSMITHKLINE-B0375463B

PATIENT
  Age: 39 Year
  Sex: Male

DRUGS (2)
  1. PARACETAMOL [Suspect]
     Indication: INFLUENZA LIKE ILLNESS
     Route: 048
     Dates: start: 20050216, end: 20050223
  2. AUGMENTIN [Concomitant]
     Indication: INFLUENZA LIKE ILLNESS
     Route: 065
     Dates: start: 20050216, end: 20050223

REACTIONS (3)
  - ENTEROCOLITIS [None]
  - GASTRITIS [None]
  - HEPATITIS ACUTE [None]
